FAERS Safety Report 8148452-8 (Version None)
Quarter: 2012Q1

REPORT INFORMATION
  Report Type: 
  Country: None (occurrence: None)
  Receive Date: 20120218
  Receipt Date: 20110602
  Transmission Date: 20120608
  Serious: No
  Sender: FDA-Public Use
  Company Number: US-ALLERGAN-1107559US

PATIENT
  Age: 65 Year
  Sex: Female

DRUGS (5)
  1. AMITRIPTYLINE HCL [Concomitant]
     Indication: SEDATIVE THERAPY
     Dosage: 10 MG, QHS
  2. BACLOFEN [Concomitant]
     Indication: MUSCLE RELAXANT THERAPY
     Dosage: 5 MG, BID
     Route: 048
  3. IMITREX [Concomitant]
     Indication: MIGRAINE
     Dosage: UNK
  4. MAXALT [Concomitant]
     Indication: MIGRAINE
     Dosage: UNK
  5. BOTULINUM TOXIN TYPE A [Suspect]
     Indication: MIGRAINE
     Dosage: UNK
     Route: 030
     Dates: start: 20110513, end: 20110513

REACTIONS (5)
  - MUSCULOSKELETAL STIFFNESS [None]
  - MIGRAINE [None]
  - SKIN TIGHTNESS [None]
  - INFLAMMATION [None]
  - MUSCULOSKELETAL PAIN [None]
